FAERS Safety Report 10491233 (Version 1)
Quarter: 2014Q4

REPORT INFORMATION
  Report Type: Spontaneous
  Country: US (occurrence: US)
  Receive Date: 20141002
  Receipt Date: 20141002
  Transmission Date: 20150528
  Serious: No
  Sender: FDA-Public Use
  Company Number: US-GLAXOSMITHKLINE-A1049681A

PATIENT
  Age: 69 Year
  Sex: Male

DRUGS (10)
  1. ALPRAZOLAM. [Concomitant]
     Active Substance: ALPRAZOLAM
  2. NIACIN. [Concomitant]
     Active Substance: NIACIN
  3. FISH OIL [Concomitant]
     Active Substance: FISH OIL
  4. SIMVASTATIN. [Concomitant]
     Active Substance: SIMVASTATIN
  5. FUROSEMIDE. [Concomitant]
     Active Substance: FUROSEMIDE
  6. LOPERAMIDE [Concomitant]
     Active Substance: LOPERAMIDE
  7. ADVAIR HFA [Suspect]
     Active Substance: FLUTICASONE PROPIONATE\SALMETEROL XINAFOATE
     Indication: CHRONIC OBSTRUCTIVE PULMONARY DISEASE
     Dosage: 1PUFF TWICE PER DAY
     Route: 055
     Dates: start: 2005
  8. DAILY VITAMIN [Concomitant]
     Active Substance: VITAMINS
  9. BABY ASPIRIN [Concomitant]
     Active Substance: ASPIRIN
  10. ASTEPRO [Concomitant]
     Active Substance: AZELASTINE HYDROCHLORIDE

REACTIONS (4)
  - Oral fungal infection [Recovered/Resolved]
  - Tongue discolouration [Recovered/Resolved]
  - Product quality issue [Unknown]
  - Drug administration error [Unknown]

NARRATIVE: CASE EVENT DATE: 2013
